APPROVED DRUG PRODUCT: LORAZEPAM
Active Ingredient: LORAZEPAM
Strength: 2MG/ML
Dosage Form/Route: CONCENTRATE;ORAL
Application: A090260 | Product #001 | TE Code: AA
Applicant: PHARMACEUTICAL ASSOC INC
Approved: Jun 15, 2010 | RLD: No | RS: No | Type: RX